FAERS Safety Report 23550780 (Version 1)
Quarter: 2024Q1

REPORT INFORMATION
  Report Type: Report from Study
  Country: ES (occurrence: ES)
  Receive Date: 20240221
  Receipt Date: 20240221
  Transmission Date: 20240410
  Serious: Yes (Hospitalization)
  Sender: FDA-Public Use
  Company Number: ES-ABBVIE-4179555

PATIENT
  Age: 83 Year
  Sex: Female

DRUGS (3)
  1. CARBIDOPA\LEVODOPA [Suspect]
     Active Substance: CARBIDOPA\LEVODOPA
     Indication: Parkinson^s disease
     Route: 050
     Dates: start: 20220517
  2. CARBIDOPA\LEVODOPA [Suspect]
     Active Substance: CARBIDOPA\LEVODOPA
  3. DOMPERIDONE [Concomitant]
     Active Substance: DOMPERIDONE
     Indication: Nausea
     Route: 048
     Dates: start: 20221027

REACTIONS (5)
  - Device kink [Not Recovered/Not Resolved]
  - Abdominal distension [Unknown]
  - Off label use [Not Recovered/Not Resolved]
  - Gastroenteritis [Unknown]
  - Bezoar [Not Recovered/Not Resolved]

NARRATIVE: CASE EVENT DATE: 20221001
